FAERS Safety Report 23794643 (Version 1)
Quarter: 2024Q2

REPORT INFORMATION
  Report Type: Spontaneous
  Country: AU (occurrence: None)
  Receive Date: 20240429
  Receipt Date: 20240429
  Transmission Date: 20240716
  Serious: Yes (Hospitalization, Other)
  Sender: FDA-Public Use
  Company Number: AU-ROCHE-3549483

PATIENT
  Age: 82 Year
  Sex: Male

DRUGS (7)
  1. OBINUTUZUMAB [Suspect]
     Active Substance: OBINUTUZUMAB
     Indication: Lymphocytic leukaemia
     Route: 042
     Dates: start: 20240228, end: 20240228
  2. OBINUTUZUMAB [Suspect]
     Active Substance: OBINUTUZUMAB
     Indication: Lymphocytic leukaemia
     Route: 042
     Dates: start: 20240306
  3. SODIUM CHLORIDE [Suspect]
     Active Substance: SODIUM CHLORIDE
     Indication: Product used for unknown indication
     Route: 042
     Dates: start: 20240306
  4. SODIUM CHLORIDE [Suspect]
     Active Substance: SODIUM CHLORIDE
     Dosage: 900 MG/100 ML BAG
     Route: 042
     Dates: start: 20240228, end: 20240228
  5. DEXAMETHASONE [Concomitant]
     Active Substance: DEXAMETHASONE
  6. LORATADINE [Concomitant]
     Active Substance: LORATADINE
  7. ACETAMINOPHEN [Concomitant]
     Active Substance: ACETAMINOPHEN

REACTIONS (2)
  - Atrial fibrillation [Recovered/Resolved]
  - Heart rate abnormal [Unknown]

NARRATIVE: CASE EVENT DATE: 20240228
